FAERS Safety Report 20776837 (Version 2)
Quarter: 2022Q3

REPORT INFORMATION
  Report Type: Spontaneous
  Country: JP (occurrence: JP)
  Receive Date: 20220502
  Receipt Date: 20220718
  Transmission Date: 20221026
  Serious: Yes (Hospitalization)
  Sender: FDA-Public Use
  Company Number: JP-ONO-2022JP010012

PATIENT
  Age: 50 Year
  Sex: Male

DRUGS (18)
  1. BRAFTOVI [Suspect]
     Active Substance: ENCORAFENIB
     Indication: Colon cancer
     Dosage: 300 MG, EVERYDAY
     Route: 048
     Dates: start: 20220308, end: 20220322
  2. BRAFTOVI [Suspect]
     Active Substance: ENCORAFENIB
     Dosage: 225 MG, EVERYDAY
     Route: 048
     Dates: start: 20220419, end: 20220426
  3. BRAFTOVI [Suspect]
     Active Substance: ENCORAFENIB
     Dosage: 225 MG, EVERYDAY
     Route: 048
     Dates: start: 20220510, end: 20220607
  4. BRAFTOVI [Suspect]
     Active Substance: ENCORAFENIB
     Dosage: 225 MG, EVERYDAY
     Route: 048
     Dates: start: 20220621
  5. MEKTOVI [Suspect]
     Active Substance: BINIMETINIB
     Indication: Colon cancer
     Dosage: 45 MG, Q12H
     Route: 048
     Dates: start: 20220308, end: 20220315
  6. MEKTOVI [Suspect]
     Active Substance: BINIMETINIB
     Dosage: 30 MG, Q12H
     Route: 048
     Dates: start: 20220316, end: 20220328
  7. MEKTOVI [Suspect]
     Active Substance: BINIMETINIB
     Dosage: 15 MG, Q12H
     Route: 048
     Dates: start: 20220419, end: 20220426
  8. MEKTOVI [Suspect]
     Active Substance: BINIMETINIB
     Dosage: 15 MG, Q12H
     Route: 048
     Dates: start: 20220510, end: 20220607
  9. MEKTOVI [Suspect]
     Active Substance: BINIMETINIB
     Dosage: 15 MG, Q12H
     Route: 048
     Dates: start: 20220621
  10. ERBITUX [Concomitant]
     Active Substance: CETUXIMAB
     Indication: Colon cancer
     Dosage: 650 MG
     Route: 065
     Dates: start: 20220308, end: 20220308
  11. ERBITUX [Concomitant]
     Active Substance: CETUXIMAB
     Dosage: 400 MG
     Route: 065
     Dates: start: 20220315, end: 20220322
  12. ERBITUX [Concomitant]
     Active Substance: CETUXIMAB
     Dosage: 330 MG
     Route: 065
     Dates: start: 20220419, end: 20220426
  13. ERBITUX [Concomitant]
     Active Substance: CETUXIMAB
     Dosage: 330 MG
     Route: 065
     Dates: start: 20220510, end: 20220607
  14. ERBITUX [Concomitant]
     Active Substance: CETUXIMAB
     Dosage: 330 MG
     Route: 065
     Dates: start: 20220621, end: 20220628
  15. NESINA [Concomitant]
     Active Substance: ALOGLIPTIN BENZOATE
     Dosage: 12.5 MG, EVERYDAY
     Route: 048
  16. METFORMIN HYDROCHLORIDE [Concomitant]
     Active Substance: METFORMIN HYDROCHLORIDE
     Dosage: 250 MG, Q12H
     Route: 048
  17. CALONAL [Concomitant]
     Active Substance: ACETAMINOPHEN
     Dosage: 600 MG ONCE TO 3 TIMES/DAY
     Route: 048
  18. OLMESARTAN MEDOXOMIL [Concomitant]
     Active Substance: OLMESARTAN MEDOXOMIL
     Dosage: 20 MG, DAILY
     Route: 048

REACTIONS (3)
  - Sciatica [Recovering/Resolving]
  - Nausea [Recovering/Resolving]
  - Malaise [Not Recovered/Not Resolved]

NARRATIVE: CASE EVENT DATE: 20220322
